FAERS Safety Report 23480513 (Version 1)
Quarter: 2024Q1

REPORT INFORMATION
  Report Type: Spontaneous
  Country: PL (occurrence: PL)
  Receive Date: 20240205
  Receipt Date: 20240205
  Transmission Date: 20240409
  Serious: Yes (Other)
  Sender: FDA-Public Use
  Company Number: None

PATIENT
  Age: 62 Year
  Sex: Male
  Weight: 55 kg

DRUGS (9)
  1. FLUOROURACIL [Suspect]
     Active Substance: FLUOROURACIL
     Indication: Gastric cancer
     Route: 042
     Dates: start: 20181116, end: 20181117
  2. DEXAMETHASONE [Concomitant]
     Active Substance: DEXAMETHASONE
     Indication: Gastric cancer
     Route: 042
     Dates: start: 20181116, end: 20181117
  3. METAMIZOLE SODIUM [Concomitant]
     Active Substance: METAMIZOLE SODIUM
     Indication: Gastric cancer
     Dosage: 1 AMPOULE CONTAIN 1G
     Route: 042
     Dates: start: 20181116, end: 20181117
  4. ONDANSETRON [Concomitant]
     Active Substance: ONDANSETRON
     Indication: Gastric cancer
     Route: 042
     Dates: start: 20181116, end: 20181117
  5. OMEPRAZOLE [Concomitant]
     Active Substance: OMEPRAZOLE
     Indication: Gastric cancer
     Dosage: 20 MG
     Route: 048
     Dates: start: 20181117, end: 20181117
  6. CISPLATIN [Suspect]
     Active Substance: CISPLATIN
     Indication: Gastric cancer
     Route: 042
     Dates: start: 20181116, end: 20181117
  7. HALOPERIDOL [Concomitant]
     Active Substance: HALOPERIDOL
     Indication: Gastric cancer
     Route: 048
     Dates: start: 20181116, end: 20181117
  8. CHLORPROMAZINE HYDROCHLORIDE [Concomitant]
     Active Substance: CHLORPROMAZINE HYDROCHLORIDE
     Indication: Gastric cancer
     Dosage: 1/2 AMPOULE
     Route: 030
     Dates: start: 20181117, end: 20181117
  9. LACTULOSUM [Concomitant]
     Indication: Gastric cancer
     Route: 048
     Dates: start: 20181116, end: 20181117

REACTIONS (4)
  - Restlessness [Recovering/Resolving]
  - Altered state of consciousness [Recovering/Resolving]
  - Chest pain [Recovering/Resolving]
  - Pain in extremity [Recovering/Resolving]

NARRATIVE: CASE EVENT DATE: 20181117
